FAERS Safety Report 5291714-2 (Version None)
Quarter: 2007Q2

REPORT INFORMATION
  Report Type: 
  Country: None (occurrence: None)
  Receive Date: 20070410
  Receipt Date: 20070403
  Transmission Date: 20071010
  Serious: Yes (Other)
  Sender: FDA-Public Use
  Company Number: US-BAYER-200710818BWH

PATIENT
  Age: 43 Year
  Sex: Female
  Weight: 55 kg

DRUGS (10)
  1. AVELOX [Suspect]
     Indication: DRUG USE FOR UNKNOWN INDICATION
     Dosage: AS USED: 400 MG  UNIT DOSE: 400 MG
     Route: 048
     Dates: start: 20070227, end: 20070309
  2. FEXOFENADINE [Concomitant]
  3. FLONASE [Concomitant]
  4. ALBUTEROL [Concomitant]
     Route: 055
  5. ACETAMINOPHEN [Concomitant]
     Route: 048
  6. KELP [Concomitant]
  7. VITAMIN B COMPLEX CAP [Concomitant]
     Route: 048
  8. FERROUS SULFATE [Concomitant]
     Route: 048
  9. ACIDOPHILUS [Concomitant]
  10. ASCORBIC ACID [Concomitant]

REACTIONS (1)
  - DEHYDRATION [None]
